FAERS Safety Report 20511510 (Version 1)
Quarter: 2022Q1

REPORT INFORMATION
  Report Type: Spontaneous
  Country: US (occurrence: None)
  Receive Date: 20220224
  Receipt Date: 20220224
  Transmission Date: 20220423
  Serious: Yes (Hospitalization)
  Sender: FDA-Public Use
  Company Number: None

PATIENT
  Age: 20 Year
  Sex: Male
  Weight: 62 kg

DRUGS (9)
  1. ETOPOSIDE [Suspect]
     Active Substance: ETOPOSIDE
     Dates: end: 20190526
  2. CARBOPLATIN [Suspect]
     Active Substance: CARBOPLATIN
     Dates: end: 20190526
  3. IFOSFAMIDE [Suspect]
     Active Substance: IFOSFAMIDE
     Dates: end: 20190508
  4. PACLITAXEL [Suspect]
     Active Substance: PACLITAXEL
     Dates: end: 20190503
  5. NEULASTA [Suspect]
     Active Substance: PEGFILGRASTIM
     Dates: end: 20190531
  6. ISOFLURANE [Concomitant]
     Active Substance: ISOFLURANE
  7. MORPHINE [Concomitant]
     Active Substance: MORPHINE
  8. NEOSTIGMINE [Concomitant]
     Active Substance: NEOSTIGMINE
  9. PROPOFOL [Concomitant]
     Active Substance: PROPOFOL

REACTIONS (5)
  - Neutropenic sepsis [None]
  - Multiple organ dysfunction syndrome [None]
  - Neoplasm progression [None]
  - Testicular germ cell tumour [None]
  - Respiratory failure [None]

NARRATIVE: CASE EVENT DATE: 20190606
